FAERS Safety Report 6897115-5 (Version None)
Quarter: 2010Q3

REPORT INFORMATION
  Report Type: 
  Country: None (occurrence: None)
  Receive Date: 20100802
  Receipt Date: 20070328
  Transmission Date: 20110219
  Serious: No
  Sender: FDA-Public Use
  Company Number: US-PFIZER INC-2007025072

PATIENT
  Sex: Female
  Weight: 56.7 kg

DRUGS (3)
  1. LYRICA [Suspect]
     Indication: CONVULSION
     Dates: start: 20070301
  2. IBUPROFEN [Concomitant]
  3. DARVOCET [Concomitant]

REACTIONS (1)
  - PYREXIA [None]
